FAERS Safety Report 6335139-7 (Version None)
Quarter: 2009Q3

REPORT INFORMATION
  Report Type: 
  Country: None (occurrence: None)
  Receive Date: 20090831
  Receipt Date: 20090820
  Transmission Date: 20100115
  Serious: Yes (Other)
  Sender: FDA-Public Use
  Company Number: US-JNJFOC-20090708080

PATIENT
  Sex: Male
  Weight: 100 kg

DRUGS (5)
  1. REOPRO [Suspect]
     Route: 042
  2. REOPRO [Suspect]
     Indication: THROMBOTIC MICROANGIOPATHY
     Route: 042
  3. HEPARIN [Concomitant]
     Indication: DRUG USE FOR UNKNOWN INDICATION
  4. PLAVIX [Concomitant]
     Indication: DRUG USE FOR UNKNOWN INDICATION
  5. ASPIRIN [Concomitant]
     Indication: DRUG USE FOR UNKNOWN INDICATION

REACTIONS (2)
  - INCORRECT DRUG ADMINISTRATION DURATION [None]
  - PLATELET COUNT DECREASED [None]
